FAERS Safety Report 6612140-7 (Version None)
Quarter: 2010Q1

REPORT INFORMATION
  Report Type: 
  Country: None (occurrence: None)
  Receive Date: 20100303
  Receipt Date: 20090616
  Transmission Date: 20100710
  Serious: No
  Sender: FDA-Public Use
  Company Number: US-ABBOTT-09P-163-0580247-00

PATIENT
  Sex: Female

DRUGS (2)
  1. GENGRAF [Suspect]
     Indication: APLASTIC ANAEMIA
     Dosage: HIGH DOSE TO START AND THEN REDUCED OVER TIME
     Route: 048
     Dates: start: 20030301, end: 20040907
  2. GENGRAF [Suspect]
     Route: 048
     Dates: start: 20090616, end: 20090616

REACTIONS (7)
  - DIARRHOEA [None]
  - HAIR GROWTH ABNORMAL [None]
  - ORAL DISCOMFORT [None]
  - PYREXIA [None]
  - THROAT IRRITATION [None]
  - VOMITING [None]
  - WRONG DRUG ADMINISTERED [None]
